FAERS Safety Report 8215152-5 (Version None)
Quarter: 2012Q1

REPORT INFORMATION
  Report Type: 
  Country: None (occurrence: None)
  Receive Date: 20120229
  Receipt Date: 20110223
  Transmission Date: 20120608
  Serious: Yes (Other)
  Sender: FDA-Public Use
  Company Number: PHHY2011US15387

PATIENT
  Sex: Male

DRUGS (2)
  1. NEORAL [Suspect]
     Indication: IRON METABOLISM DISORDER
  2. NEORAL [Suspect]
     Indication: ANAEMIA OF CHRONIC DISEASE

REACTIONS (2)
  - RENAL FAILURE [None]
  - DRUG INEFFECTIVE [None]
